FAERS Safety Report 17151949 (Version 2)
Quarter: 2020Q1

REPORT INFORMATION
  Report Type: Spontaneous
  Country: DE (occurrence: DE)
  Receive Date: 20191213
  Receipt Date: 20200108
  Transmission Date: 20200409
  Serious: Yes (Other)
  Sender: FDA-Public Use
  Company Number: DE-PFIZER INC-2019537907

PATIENT
  Age: 55 Year
  Sex: Female

DRUGS (2)
  1. ESTRADIOL. [Suspect]
     Active Substance: ESTRADIOL
     Indication: PSYCHOTIC DISORDER
     Dosage: 1 DF, 1X/DAY
     Route: 065
     Dates: end: 201903
  2. ESTRADIOL. [Suspect]
     Active Substance: ESTRADIOL
     Indication: MENOPAUSE

REACTIONS (6)
  - Abdominal pain upper [Not Recovered/Not Resolved]
  - Diarrhoea [Not Recovered/Not Resolved]
  - Carbohydrate tolerance decreased [Unknown]
  - Off label use [Unknown]
  - Pancreatic failure [Unknown]
  - Nausea [Not Recovered/Not Resolved]
